FAERS Safety Report 7027237-X (Version None)
Quarter: 2010Q4

REPORT INFORMATION
  Report Type: 
  Country: None (occurrence: None)
  Receive Date: 20101004
  Receipt Date: 20091221
  Transmission Date: 20110411
  Serious: Yes (Other)
  Sender: FDA-Public Use
  Company Number: AR-SANOFI-AVENTIS-2009SA010071

PATIENT
  Age: 69 Year
  Sex: Male

DRUGS (9)
  1. INSULIN GLARGINE [Suspect]
     Route: 058
     Dates: start: 20040423
  2. OPTIPEN [Suspect]
     Dates: start: 20040423
  3. BLINDED THERAPY [Suspect]
     Dates: start: 20040423
  4. BISOPROLOL [Concomitant]
  5. ASPIRIN [Concomitant]
  6. ENALAPRIL MALEATE [Concomitant]
     Indication: HYPERTENSION
  7. ALLOPURINOL [Concomitant]
  8. CLOPIDOGREL [Concomitant]
  9. ATORVASTATIN [Concomitant]

REACTIONS (3)
  - HAEMATURIA [None]
  - TRANSITIONAL CELL CARCINOMA [None]
  - URINARY BLADDER POLYP [None]
